FAERS Safety Report 20159683 (Version 6)
Quarter: 2022Q3

REPORT INFORMATION
  Report Type: Report from Study
  Country: US (occurrence: US)
  Receive Date: 20211208
  Receipt Date: 20220624
  Transmission Date: 20221026
  Serious: No
  Sender: FDA-Public Use
  Company Number: US-NOVARTISTESTPH-NVSC2021US279842

PATIENT
  Sex: Female

DRUGS (3)
  1. COSENTYX [Suspect]
     Active Substance: SECUKINUMAB
     Indication: Psoriasis
     Dosage: 300 MG, QW(FOR 5W THEN EVERY 4 WEEKS)
     Route: 058
     Dates: start: 20211122
  2. COSENTYX [Suspect]
     Active Substance: SECUKINUMAB
     Dosage: 300 MG, QMO
     Route: 058
  3. COSENTYX [Suspect]
     Active Substance: SECUKINUMAB
     Dosage: 300 MG
     Route: 065
     Dates: start: 20220315

REACTIONS (6)
  - Condition aggravated [Unknown]
  - Pain of skin [Not Recovered/Not Resolved]
  - Erythema [Recovering/Resolving]
  - Blister [Unknown]
  - Skin exfoliation [Unknown]
  - Alopecia [Unknown]
